APPROVED DRUG PRODUCT: SEASONALE
Active Ingredient: ETHINYL ESTRADIOL; LEVONORGESTREL
Strength: 0.03MG;0.15MG
Dosage Form/Route: TABLET;ORAL
Application: N021544 | Product #001 | TE Code: AB
Applicant: TEVA BRANDED PHARMACEUTICAL PRODUCTS R AND D INC
Approved: Sep 5, 2003 | RLD: Yes | RS: Yes | Type: RX